FAERS Safety Report 4471455-1 (Version None)
Quarter: 2004Q4

REPORT INFORMATION
  Report Type: 
  Country: None (occurrence: None)
  Receive Date: 20041006
  Receipt Date: 20041006
  Transmission Date: 20050328
  Serious: Yes (Other)
  Sender: FDA-Public Use
  Company Number: None

PATIENT
  Sex: Male
  Weight: 17.2367 kg

DRUGS (2)
  1. ZYRTEC [Suspect]
     Indication: ASTHMA
  2. ALBUTEROL [Concomitant]

REACTIONS (1)
  - MEDICATION ERROR [None]
